FAERS Safety Report 26080607 (Version 1)
Quarter: 2025Q4

REPORT INFORMATION
  Report Type: Spontaneous
  Country: GB (occurrence: GB)
  Receive Date: 20251124
  Receipt Date: 20251124
  Transmission Date: 20260117
  Serious: No
  Sender: ALKEM
  Company Number: GB-ALKEM LABORATORIES LIMITED-GB-ALKEM-2024-23462

PATIENT
  Sex: Female

DRUGS (1)
  1. COLESEVELAM HYDROCHLORIDE [Suspect]
     Active Substance: COLESEVELAM HYDROCHLORIDE
     Indication: Product used for unknown indication
     Dosage: 12 DOSAGE FORM, QD, TOTAL DOSE 7.5 GRAM (STRENGTH: 625 MILLIGRAM, FILM-COATED TABLET)
     Route: 048

REACTIONS (2)
  - Incorrect dose administered [Unknown]
  - Overdose [Unknown]
